FAERS Safety Report 19194163 (Version 1)
Quarter: 2021Q2

REPORT INFORMATION
  Report Type: Report from Study
  Country: IN (occurrence: IN)
  Receive Date: 20210429
  Receipt Date: 20210429
  Transmission Date: 20210717
  Serious: Yes (Death)
  Sender: FDA-Public Use
  Company Number: PHHY2017IN131224

PATIENT
  Age: 49 Year
  Sex: Male
  Weight: 88 kg

DRUGS (7)
  1. ROSUVAS [Concomitant]
     Active Substance: ROSUVASTATIN CALCIUM
     Indication: PRODUCT USED FOR UNKNOWN INDICATION
     Dosage: UNK
     Route: 048
  2. VYMADA [Suspect]
     Active Substance: SACUBITRIL\VALSARTAN
     Indication: CARDIAC FAILURE
     Dosage: 1.5 DF,  BID (1 IN THE MORNING AND HALF AT NIGHT)
     Route: 048
     Dates: start: 20170824
  3. VYMADA [Suspect]
     Active Substance: SACUBITRIL\VALSARTAN
     Dosage: 1.5 DF (200MG HALF IN THE MORNING AND FULL IN THE NIGHT), BID
     Route: 048
  4. DEPLATT [Concomitant]
     Active Substance: CLOPIDOGREL BISULFATE
     Indication: PRODUCT USED FOR UNKNOWN INDICATION
     Dosage: 75 MG, UNK
     Route: 048
  5. DOLO [Concomitant]
     Indication: PAIN
     Dosage: 650 MG, PRN
     Route: 048
  6. VYMADA [Suspect]
     Active Substance: SACUBITRIL\VALSARTAN
     Dosage: 0.5 DF, BID (OF 200 MG)
     Route: 048
  7. DYTOR [Concomitant]
     Active Substance: TORSEMIDE
     Indication: PRODUCT USED FOR UNKNOWN INDICATION
     Dosage: 10 MG, UNK
     Route: 048

REACTIONS (3)
  - Wrong technique in product usage process [Not Recovered/Not Resolved]
  - Product prescribing error [Unknown]
  - SARS-CoV-2 test positive [Fatal]

NARRATIVE: CASE EVENT DATE: 20170824
